FAERS Safety Report 7529296-4 (Version None)
Quarter: 2011Q2

REPORT INFORMATION
  Report Type: 
  Country: None (occurrence: None)
  Receive Date: 20110520
  Receipt Date: 20110313
  Transmission Date: 20111010
  Serious: No
  Sender: FDA-Public Use
  Company Number: 029308

PATIENT

DRUGS (1)
  1. LACOSAMIDE [Suspect]
     Dosage: (UNKNOWN DOSE)

REACTIONS (2)
  - DIZZINESS [None]
  - NAUSEA [None]
